FAERS Safety Report 6081104-7 (Version None)
Quarter: 2009Q1

REPORT INFORMATION
  Report Type: 
  Country: None (occurrence: None)
  Receive Date: 20090114
  Receipt Date: 20071004
  Transmission Date: 20090719
  Serious: Yes (Hospitalization)
  Sender: FDA-Public Use
  Company Number: 268184

PATIENT
  Age: 78 Year
  Sex: Female

DRUGS (1)
  1. NOVOLIN N [Suspect]
     Indication: TYPE 1 DIABETES MELLITUS
     Dosage: 20 IU,QD,SUBCUTANEOUS
     Route: 058
     Dates: start: 20020101, end: 20070901

REACTIONS (1)
  - BLOOD GLUCOSE INCREASED [None]
